FAERS Safety Report 20691665 (Version 1)
Quarter: 2022Q2

REPORT INFORMATION
  Report Type: Spontaneous
  Country: US (occurrence: None)
  Receive Date: 20220407
  Receipt Date: 20220407
  Transmission Date: 20220721
  Serious: Yes (Hospitalization)
  Sender: FDA-Public Use
  Company Number: None

PATIENT
  Age: 35 Year
  Sex: Male
  Weight: 114.9 kg

DRUGS (6)
  1. CYCLOPHOSPHAMIDE [Suspect]
     Active Substance: CYCLOPHOSPHAMIDE
     Dates: start: 20220126, end: 20220317
  2. CYTARABINE [Suspect]
     Active Substance: CYTARABINE
     Dates: start: 20220126, end: 20220327
  3. MERCAPTOPURINE [Suspect]
     Active Substance: MERCAPTOPURINE
     Dates: start: 20220126, end: 20220330
  4. METHOTREXATE [Suspect]
     Active Substance: METHOTREXATE
     Dates: start: 20220126, end: 20220405
  5. RITUXIMAB [Suspect]
     Active Substance: RITUXIMAB
     Dates: start: 20220126, end: 20220325
  6. VINCRISTINE SULFATE [Suspect]
     Active Substance: VINCRISTINE SULFATE
     Dates: start: 20220126, end: 20220331

REACTIONS (4)
  - Feeling abnormal [None]
  - Chills [None]
  - Body temperature increased [None]
  - Febrile neutropenia [None]

NARRATIVE: CASE EVENT DATE: 20220405
